FAERS Safety Report 25901656 (Version 1)
Quarter: 2025Q4

REPORT INFORMATION
  Report Type: Spontaneous
  Country: US (occurrence: US)
  Receive Date: 20251009
  Receipt Date: 20251009
  Transmission Date: 20260118
  Serious: No
  Sender: SANOFI AVENTIS
  Company Number: US-SA-2025SA296520

PATIENT
  Sex: Female
  Weight: 90.91 kg

DRUGS (17)
  1. DUPIXENT [Suspect]
     Active Substance: DUPILUMAB
     Indication: Neurodermatitis
     Dosage: 300 MG, QOW
     Route: 058
  2. DUPIXENT [Suspect]
     Active Substance: DUPILUMAB
     Indication: Illness
  3. UNSPECIFIED INGREDIENT [Suspect]
     Active Substance: UNSPECIFIED INGREDIENT
     Dosage: UNK
  4. BUPROPION HYDROCHLORIDE XL [Concomitant]
     Active Substance: BUPROPION HYDROCHLORIDE
  5. PROPRANOLOL HYDROCHLORIDE [Concomitant]
     Active Substance: PROPRANOLOL HYDROCHLORIDE
  6. ESCITALOPRAM OXALATE [Concomitant]
     Active Substance: ESCITALOPRAM OXALATE
  7. CLOPIDOGREL [Concomitant]
     Active Substance: CLOPIDOGREL BISULFATE
  8. ATORVASTATIN CALCIUM [Concomitant]
     Active Substance: ATORVASTATIN CALCIUM
  9. ALPRAZOLAM [Concomitant]
     Active Substance: ALPRAZOLAM
  10. ESTRADIOL [Concomitant]
     Active Substance: ESTRADIOL
  11. KETOCONAZOLE [Concomitant]
     Active Substance: KETOCONAZOLE
  12. MUPIROCIN [Concomitant]
     Active Substance: MUPIROCIN
  13. HYDROCORTISONE [Concomitant]
     Active Substance: HYDROCORTISONE
  14. CLOBETASOL [Concomitant]
     Active Substance: CLOBETASOL
  15. IRON [Concomitant]
     Active Substance: IRON
     Dosage: 142(45)MG
  16. CLONAZEPAM [Concomitant]
     Active Substance: CLONAZEPAM
  17. CLOBETASOL [Concomitant]
     Active Substance: CLOBETASOL
     Dosage: UNK

REACTIONS (1)
  - Illness [Unknown]
